FAERS Safety Report 7356687-7 (Version None)
Quarter: 2011Q1

REPORT INFORMATION
  Report Type: 
  Country: None (occurrence: None)
  Receive Date: 20110316
  Receipt Date: 20110311
  Transmission Date: 20110831
  Serious: Yes (Life-Threatening, Other)
  Sender: FDA-Public Use
  Company Number: PHHY2010JP26733

PATIENT
  Sex: Male
  Weight: 61 kg

DRUGS (19)
  1. VALSARTAN [Suspect]
     Dosage: 80 MG, QD
     Route: 048
     Dates: start: 20080416
  2. LASIX [Concomitant]
     Indication: HYPERTENSION
     Dosage: 40 MG, UNK
     Route: 048
     Dates: start: 20080402, end: 20090808
  3. INSULIN HUMAN [Concomitant]
     Dosage: UNK
     Route: 058
     Dates: start: 20020315, end: 20080823
  4. VALSARTAN [Suspect]
     Indication: HYPERTENSION
     Dosage: 40 MG, QD
     Route: 048
     Dates: start: 20080318, end: 20080416
  5. NORVASC [Concomitant]
     Indication: HYPERTENSION
     Dosage: 5 MG, UNK
     Route: 048
     Dates: start: 20020118
  6. FERROUS CITRATE [Concomitant]
     Dosage: 100 MG, UNK
     Route: 048
     Dates: start: 20060727
  7. ASPIRIN [Concomitant]
     Dosage: UNK
     Route: 048
     Dates: start: 20060216
  8. TAURINE [Concomitant]
     Dosage: 3 G, UNK
     Route: 048
     Dates: start: 20080521
  9. LASIX [Concomitant]
     Dosage: 120 MG, UNK
     Route: 048
     Dates: start: 20080402, end: 20090808
  10. KREMEZIN [Concomitant]
     Dosage: 3 G, UNK
     Route: 048
     Dates: start: 20080304
  11. EPOETIN BETA [Concomitant]
     Dosage: UNK
     Route: 058
     Dates: start: 20080521, end: 20080625
  12. KREMEZIN [Concomitant]
     Dosage: 3 G, UNK
     Route: 048
     Dates: start: 20080304
  13. LASIX [Concomitant]
     Dosage: 40 MG, UNK
     Route: 048
     Dates: start: 20080402, end: 20090808
  14. ACECOL [Concomitant]
     Indication: HYPERTENSION
     Dosage: UNK
     Route: 048
     Dates: start: 20000225
  15. NORVASC [Concomitant]
     Dosage: 2.5 MG, UNK
     Route: 048
     Dates: start: 20020118
  16. DIART [Concomitant]
     Indication: HYPERTENSION
     Dosage: 30 MG, UNK
     Route: 048
     Dates: start: 20090808
  17. KALIMATE [Concomitant]
     Dosage: 10.8 MG, UNK
     Route: 048
     Dates: start: 20081216
  18. URSO 250 [Concomitant]
     Dosage: 600 MG, UNK
     Route: 048
     Dates: start: 20011201
  19. TAURINE [Concomitant]
     Dosage: 3 G, UNK
     Route: 048
     Dates: start: 20080521

REACTIONS (2)
  - DIABETIC NEPHROPATHY [None]
  - HYPERKALAEMIA [None]
